FAERS Safety Report 5602438-3 (Version None)
Quarter: 2008Q1

REPORT INFORMATION
  Report Type: 
  Country: None (occurrence: None)
  Receive Date: 20080122
  Receipt Date: 20080116
  Transmission Date: 20080703
  Serious: Yes (Hospitalization)
  Sender: FDA-Public Use
  Company Number: 163-20785-08010924

PATIENT
  Sex: Male

DRUGS (4)
  1. THALOMID [Suspect]
     Indication: MULTIPLE MYELOMA
     Dosage: 50 MG, QD, ORAL;  50 MG, QD, ORAL;  150-100 MG, DAILY, ORAL;  200-50MG, DAILY
     Route: 048
     Dates: start: 20030830, end: 20040101
  2. THALOMID [Suspect]
     Indication: MULTIPLE MYELOMA
     Dosage: 50 MG, QD, ORAL;  50 MG, QD, ORAL;  150-100 MG, DAILY, ORAL;  200-50MG, DAILY
     Route: 048
     Dates: start: 20040331, end: 20070601
  3. THALOMID [Suspect]
     Indication: MULTIPLE MYELOMA
     Dosage: 50 MG, QD, ORAL;  50 MG, QD, ORAL;  150-100 MG, DAILY, ORAL;  200-50MG, DAILY
     Route: 048
     Dates: start: 20071213, end: 20080101
  4. THALOMID [Suspect]
     Indication: MULTIPLE MYELOMA
     Dosage: 50 MG, QD, ORAL;  50 MG, QD, ORAL;  150-100 MG, DAILY, ORAL;  200-50MG, DAILY
     Route: 048
     Dates: start: 20080101

REACTIONS (1)
  - BONE DISORDER [None]
